FAERS Safety Report 10312751 (Version 1)
Quarter: 2014Q3

REPORT INFORMATION
  Report Type: Spontaneous
  Country: US (occurrence: US)
  Receive Date: 20140718
  Receipt Date: 20140718
  Transmission Date: 20150326
  Serious: Yes (Other)
  Sender: FDA-Public Use
  Company Number: US-SUN PHARMACEUTICAL INDUSTRIES LTD-2014SUN01556

PATIENT
  Age: 70 Year
  Sex: Female

DRUGS (15)
  1. MEGESTROL [Concomitant]
     Active Substance: MEGESTROL
  2. GABAPENTIN CAPSULES 100MG [Suspect]
     Active Substance: GABAPENTIN
     Dosage: 300 MG, TWICE A DAY
     Route: 065
     Dates: start: 201206
  3. TRAMADOL [Concomitant]
     Active Substance: TRAMADOL
  4. PRAVASTATIN [Concomitant]
     Active Substance: PRAVASTATIN\PRAVASTATIN SODIUM
  5. NIACIN. [Concomitant]
     Active Substance: NIACIN
  6. AMLODIPINE [Concomitant]
     Active Substance: AMLODIPINE BESYLATE
  7. HYDROCODONE/ACETAMINOPHEN [Concomitant]
     Active Substance: ACETAMINOPHEN\HYDROCODONE
  8. ASPIRIN. [Concomitant]
     Active Substance: ASPIRIN
  9. METOPROLOL [Concomitant]
     Active Substance: METOPROLOL
  10. DOXAZOSIN [Concomitant]
     Active Substance: DOXAZOSIN\DOXAZOSIN MESYLATE
  11. GABAPENTIN CAPSULES 100MG [Suspect]
     Active Substance: GABAPENTIN
     Indication: BACK PAIN
     Dosage: 300 MG, ONCE A DAY
     Route: 065
     Dates: start: 201108
  12. BISACODYL. [Concomitant]
     Active Substance: BISACODYL
  13. FUROSEMIDE. [Concomitant]
     Active Substance: FUROSEMIDE
  14. CLONIDINE. [Concomitant]
     Active Substance: CLONIDINE
  15. HYDRALAZINE [Concomitant]
     Active Substance: HYDRALAZINE HYDROCHLORIDE

REACTIONS (2)
  - Tardive dyskinesia [Recovered/Resolved]
  - Chorea [Recovered/Resolved]
